FAERS Safety Report 14998342 (Version 1)
Quarter: 2018Q2

REPORT INFORMATION
  Report Type: Spontaneous
  Country: US (occurrence: US)
  Receive Date: 20180521
  Receipt Date: 20180521
  Transmission Date: 20180711
  Serious: Yes (Other)
  Sender: FDA-Public Use
  Company Number: None

PATIENT
  Age: 51 Year
  Sex: Male
  Weight: 63 kg

DRUGS (3)
  1. MULTI-VITAMIN - ONE A DAY FOR MEN [Concomitant]
  2. BASAGLAR [Suspect]
     Active Substance: INSULIN GLARGINE
     Indication: TYPE 1 DIABETES MELLITUS
     Dosage: ?          OTHER STRENGTH:100 UNITS PER ML;QUANTITY:5 DF DOSAGE FORM;?
     Route: 058
     Dates: start: 20180420, end: 20180517
  3. LANTUS [Concomitant]
     Active Substance: INSULIN GLARGINE

REACTIONS (11)
  - Hallucination, visual [None]
  - Sleep talking [None]
  - Hallucination [None]
  - Feeling abnormal [None]
  - Flatulence [None]
  - Diarrhoea [None]
  - Cognitive disorder [None]
  - Balance disorder [None]
  - Abnormal dreams [None]
  - Abdominal distension [None]
  - Delirium [None]

NARRATIVE: CASE EVENT DATE: 20180514
